FAERS Safety Report 5048127-8 (Version None)
Quarter: 2006Q3

REPORT INFORMATION
  Report Type: 
  Country: None (occurrence: None)
  Receive Date: 20060705
  Receipt Date: 20060615
  Transmission Date: 20061208
  Serious: Yes (Hospitalization, Other)
  Sender: FDA-Public Use
  Company Number: US200606003784

PATIENT
  Age: 76 Year
  Sex: Female

DRUGS (1)
  1. EVISTA [Suspect]
     Indication: OSTEOPENIA
     Dosage: 60 MG, DAILY (1/D), ORAL
     Route: 048
     Dates: start: 20031001

REACTIONS (8)
  - BREAST CANCER FEMALE [None]
  - BREAST CANCER METASTATIC [None]
  - BREAST DISCOLOURATION [None]
  - BREAST DISCOMFORT [None]
  - BREAST INFECTION [None]
  - LYMPHOEDEMA [None]
  - METASTASES TO LYMPH NODES [None]
  - POST PROCEDURAL OEDEMA [None]
